FAERS Safety Report 26067353 (Version 1)
Quarter: 2025Q4

REPORT INFORMATION
  Report Type: Spontaneous
  Country: BD (occurrence: BD)
  Receive Date: 20251120
  Receipt Date: 20251120
  Transmission Date: 20260118
  Serious: Yes (Other)
  Sender: SANDOZ
  Company Number: BD-002147023-NVSC2024BD154157

PATIENT
  Age: 18 Year
  Sex: Male

DRUGS (5)
  1. CLONAZEPAM [Suspect]
     Active Substance: CLONAZEPAM
     Indication: Subacute sclerosing panencephalitis
     Dosage: 0.5 UNK, QD
     Route: 065
  2. LEVETIRACETAM [Suspect]
     Active Substance: LEVETIRACETAM
     Dosage: 1000 MG, QD
     Route: 065
  3. LEVETIRACETAM [Suspect]
     Active Substance: LEVETIRACETAM
     Dosage: 1500 MG, QD
     Route: 065
  4. LEVETIRACETAM [Suspect]
     Active Substance: LEVETIRACETAM
     Indication: Subacute sclerosing panencephalitis
     Dosage: 500 MG, QD
     Route: 065
  5. TRIHEXYPHENIDYL [Suspect]
     Active Substance: TRIHEXYPHENIDYL
     Indication: Subacute sclerosing panencephalitis
     Dosage: 2 MG, QD
     Route: 065

REACTIONS (3)
  - Subacute sclerosing panencephalitis [Unknown]
  - Condition aggravated [Unknown]
  - Product use in unapproved indication [Unknown]
